FAERS Safety Report 7382348-4 (Version None)
Quarter: 2011Q1

REPORT INFORMATION
  Report Type: 
  Country: None (occurrence: None)
  Receive Date: 20110329
  Receipt Date: 20110210
  Transmission Date: 20110831
  Serious: Yes (Hospitalization, Other)
  Sender: FDA-Public Use
  Company Number: US-BAYER-201035571NA

PATIENT
  Sex: Female
  Weight: 70 kg

DRUGS (7)
  1. NAPROXEN [Concomitant]
  2. YASMIN [Suspect]
     Indication: PRODUCT USED FOR UNKNOWN INDICATION
     Route: 048
     Dates: start: 20071101
  3. LEVOXYL [Concomitant]
     Dosage: 75 MG, QD
     Dates: start: 20000101
  4. ASCORBIC ACID [Concomitant]
     Dosage: UNK UNK, PRN
  5. LEXAPRO [Concomitant]
     Indication: ANXIETY
     Dosage: 10 MG, QD
     Dates: start: 20050101
  6. KARIVA [Concomitant]
  7. ALEVE [Concomitant]
     Dosage: UNK
     Dates: start: 20050101

REACTIONS (3)
  - GALLBLADDER DISORDER [None]
  - MENTAL STATUS CHANGES [None]
  - CHOLECYSTITIS [None]
